FAERS Safety Report 7179206-7 (Version None)
Quarter: 2010Q4

REPORT INFORMATION
  Report Type: 
  Country: None (occurrence: None)
  Receive Date: 20101221
  Receipt Date: 20101211
  Transmission Date: 20110411
  Serious: Yes (Other)
  Sender: FDA-Public Use
  Company Number: US-NOVOPROD-320038

PATIENT
  Age: 65 Year
  Sex: Female
  Weight: 71.202 kg

DRUGS (11)
  1. VICTOZA [Suspect]
     Indication: TYPE 2 DIABETES MELLITUS
     Dosage: 0.6 MG, QD
     Route: 058
     Dates: start: 20100708, end: 20100715
  2. VICTOZA [Suspect]
     Dosage: 1.2 MG, QD
     Route: 058
     Dates: start: 20100716, end: 20100723
  3. VICTOZA [Suspect]
     Dosage: 1.8 MG, QD
     Route: 058
     Dates: start: 20100724, end: 20100101
  4. METOPROLOL [Concomitant]
     Indication: PRODUCT USED FOR UNKNOWN INDICATION
     Dosage: UNK
  5. KLONOPIN [Concomitant]
     Indication: PRODUCT USED FOR UNKNOWN INDICATION
     Dosage: UNK
  6. ZOCOR [Concomitant]
     Indication: PRODUCT USED FOR UNKNOWN INDICATION
     Dosage: UNK
  7. APIDRA [Concomitant]
     Indication: TYPE 2 DIABETES MELLITUS
     Dosage: UNK
  8. LANTUS [Concomitant]
     Indication: TYPE 2 DIABETES MELLITUS
     Dosage: UNK
  9. FISCHOEL [Concomitant]
     Indication: PRODUCT USED FOR UNKNOWN INDICATION
     Dosage: UNK
  10. ASPIRIN [Concomitant]
     Indication: PRODUCT USED FOR UNKNOWN INDICATION
  11. E VITAMIN E [Concomitant]
     Indication: PRODUCT USED FOR UNKNOWN INDICATION
     Dosage: UNK

REACTIONS (3)
  - ABDOMINAL PAIN [None]
  - HEPATIC NEOPLASM [None]
  - LUNG CANCER METASTATIC [None]
